FAERS Safety Report 7360364-6 (Version None)
Quarter: 2011Q1

REPORT INFORMATION
  Report Type: 
  Country: None (occurrence: None)
  Receive Date: 20110318
  Receipt Date: 20110120
  Transmission Date: 20110831
  Serious: Yes (Other)
  Sender: FDA-Public Use
  Company Number: US-BAYER-2011-023315

PATIENT
  Sex: Female
  Weight: 49.887 kg

DRUGS (3)
  1. YASMIN [Suspect]
     Dosage: UNK
     Dates: start: 20060905, end: 20080711
  2. OCELLA [Suspect]
  3. YAZ [Suspect]

REACTIONS (4)
  - CHOLELITHIASIS [None]
  - ABDOMINAL PAIN UPPER [None]
  - HAEMATOCHEZIA [None]
  - CHOLECYSTITIS [None]
